FAERS Safety Report 9719029 (Version 5)
Quarter: 2024Q4

REPORT INFORMATION
  Report Type: Spontaneous
  Country: IT (occurrence: IT)
  Receive Date: 20131127
  Receipt Date: 20241003
  Transmission Date: 20250115
  Serious: Yes (Other)
  Sender: MYLAN
  Company Number: IT-PFIZER INC-2013336369

PATIENT
  Age: 72 Year
  Sex: Male

DRUGS (12)
  1. ATORVASTATIN [Interacting]
     Active Substance: ATORVASTATIN
     Indication: Hypercholesterolaemia
     Dosage: 40 MG, DAILY
     Route: 065
     Dates: end: 201202
  2. ATORVASTATIN [Interacting]
     Active Substance: ATORVASTATIN
     Indication: Hypertriglyceridaemia
  3. SERTRALINE [Interacting]
     Active Substance: SERTRALINE HYDROCHLORIDE
     Indication: Behaviour disorder
     Dosage: 25 MG, DAILY
     Route: 065
  4. NITROGLYCERIN [Interacting]
     Active Substance: NITROGLYCERIN
     Indication: Product used for unknown indication
     Dosage: 10 MG, DAILY
     Route: 062
  5. QUETIAPINE FUMARATE [Interacting]
     Active Substance: QUETIAPINE FUMARATE
     Indication: Behaviour disorder
     Dosage: 50 MG, DAILY
     Route: 065
  6. OMEPRAZOLE [Interacting]
     Active Substance: OMEPRAZOLE
     Indication: Product used for unknown indication
     Dosage: 20 MG, DAILY
     Route: 065
  7. BISOPROLOL FUMARATE [Interacting]
     Active Substance: BISOPROLOL FUMARATE
     Indication: Product used for unknown indication
     Dosage: 2.5 MG, DAILY
     Route: 065
  8. VALSARTAN [Interacting]
     Active Substance: VALSARTAN
     Indication: Product used for unknown indication
     Dosage: 20 MG, DAILY
     Route: 065
  9. FUROSEMIDE [Interacting]
     Active Substance: FUROSEMIDE
     Indication: Diuretic therapy
     Dosage: 25 MG, 2X/WEEK
     Route: 065
  10. RANOLAZINE [Interacting]
     Active Substance: RANOLAZINE
     Indication: Angina pectoris
     Dosage: 1000 MG, DAILY
     Route: 065
     Dates: start: 201107
  11. ASPIRIN [Interacting]
     Active Substance: ASPIRIN
     Indication: Product used for unknown indication
     Dosage: 100 MG, DAILY
     Route: 065
  12. ALLOPURINOL [Interacting]
     Active Substance: ALLOPURINOL
     Indication: Product used for unknown indication
     Dosage: 150 MG, DAILY
     Route: 065

REACTIONS (2)
  - Rhabdomyolysis [Recovered/Resolved]
  - Drug interaction [Unknown]
